FAERS Safety Report 24007338 (Version 1)
Quarter: 2024Q2

REPORT INFORMATION
  Report Type: Report from Study
  Country: US (occurrence: US)
  Receive Date: 20240624
  Receipt Date: 20240624
  Transmission Date: 20240716
  Serious: Yes (Other)
  Sender: FDA-Public Use
  Company Number: US-ABBVIE-5811217

PATIENT
  Sex: Male

DRUGS (1)
  1. SKYRIZI [Suspect]
     Active Substance: RISANKIZUMAB-RZAA
     Indication: Product used for unknown indication
     Route: 058
     Dates: start: 20231201

REACTIONS (7)
  - Aortic aneurysm [Recovering/Resolving]
  - Hypertension [Recovering/Resolving]
  - Gait inability [Recovering/Resolving]
  - Chronic obstructive pulmonary disease [Recovering/Resolving]
  - Oedema peripheral [Recovering/Resolving]
  - Pain [Unknown]
  - Peripheral swelling [Unknown]
